FAERS Safety Report 5471280-9 (Version None)
Quarter: 2007Q3

REPORT INFORMATION
  Report Type: 
  Country: None (occurrence: None)
  Receive Date: 20070928
  Receipt Date: 20070917
  Transmission Date: 20080115
  Serious: Yes (Other)
  Sender: FDA-Public Use
  Company Number: US-PFIZER INC-2006052215

PATIENT
  Sex: Female

DRUGS (1)
  1. BEXTRA [Suspect]

REACTIONS (8)
  - BASAL CELL CARCINOMA [None]
  - CYST [None]
  - EAR INFECTION [None]
  - LIPOMA [None]
  - SEBORRHOEIC KERATOSIS [None]
  - SKIN CANCER [None]
  - SOLAR ELASTOSIS [None]
  - STEVENS-JOHNSON SYNDROME [None]
